FAERS Safety Report 15633088 (Version 1)
Quarter: 2018Q4

REPORT INFORMATION
  Report Type: Spontaneous
  Country: US (occurrence: US)
  Receive Date: 20181118
  Receipt Date: 20181118
  Transmission Date: 20190205
  Serious: Yes (Disabling, Other)
  Sender: FDA-Public Use
  Company Number: None

PATIENT
  Age: 59 Year
  Sex: Female
  Weight: 86.18 kg

DRUGS (3)
  1. PRIALT [Suspect]
     Active Substance: ZICONOTIDE ACETATE
  2. PROMETRIA INTRATHECAL PAIN PUMP [Suspect]
     Active Substance: DEVICE
  3. CLONIDINE. [Suspect]
     Active Substance: CLONIDINE

REACTIONS (11)
  - Palpitations [None]
  - Feeling abnormal [None]
  - Incorrect dose administered by product [None]
  - Heart rate increased [None]
  - Hyperhidrosis [None]
  - Headache [None]
  - Chest discomfort [None]
  - Dyspnoea [None]
  - Hypertension [None]
  - Apparent death [None]
  - Product complaint [None]

NARRATIVE: CASE EVENT DATE: 20181114
